FAERS Safety Report 18604455 (Version 1)
Quarter: 2020Q4

REPORT INFORMATION
  Report Type: Spontaneous
  Country: CY (occurrence: CY)
  Receive Date: 20201211
  Receipt Date: 20201211
  Transmission Date: 20210114
  Serious: Yes (Other)
  Sender: FDA-Public Use
  Company Number: CY-MICRO LABS LIMITED-ML2020-03650

PATIENT
  Age: 48 Year
  Sex: Female

DRUGS (3)
  1. ATORVASTATIN [Suspect]
     Active Substance: ATORVASTATIN
  2. TRIAMCINOLONE [Suspect]
     Active Substance: TRIAMCINOLONE
     Indication: PAIN
  3. TRIAMCINOLONE [Suspect]
     Active Substance: TRIAMCINOLONE
     Indication: INTERVERTEBRAL DISC PROTRUSION
     Dosage: EVERY OTHER DAY
     Route: 030

REACTIONS (3)
  - Cushing^s syndrome [Recovered/Resolved]
  - Drug interaction [Unknown]
  - Adrenal insufficiency [Not Recovered/Not Resolved]
